FAERS Safety Report 6015531-0 (Version None)
Quarter: 2008Q4

REPORT INFORMATION
  Report Type: 
  Country: None (occurrence: None)
  Receive Date: 20081218
  Receipt Date: 20081202
  Transmission Date: 20090506
  Serious: Yes (Other)
  Sender: FDA-Public Use
  Company Number: 2008S1000545

PATIENT
  Age: 52 Year
  Sex: Female
  Weight: 95.9811 kg

DRUGS (5)
  1. ACITRETIN [Suspect]
     Indication: PSORIASIS
     Dosage: 30 MG; QD; PO
     Route: 048
     Dates: start: 20081106
  2. AMOXICILLIN [Concomitant]
  3. HYDROCHLOROTHIAZIDE [Concomitant]
  4. CAPTOPRIL [Concomitant]
  5. NORFLOXACIN [Concomitant]

REACTIONS (2)
  - ERYTHEMA [None]
  - HYPERTENSION [None]
